FAERS Safety Report 10505101 (Version 1)
Quarter: 2014Q4

REPORT INFORMATION
  Report Type: Spontaneous
  Country: DK (occurrence: FR)
  Receive Date: 20141008
  Receipt Date: 20141008
  Transmission Date: 20150528
  Serious: Yes (Hospitalization)
  Sender: FDA-Public Use
  Company Number: FR-FRI-1000071289

PATIENT
  Age: 82 Year
  Sex: Male

DRUGS (14)
  1. INEXIUM [Concomitant]
     Active Substance: ESOMEPRAZOLE
  2. MAG 2 [Concomitant]
     Active Substance: MAGNESIUM CHLORIDE
  3. METOJECT [Suspect]
     Active Substance: METHOTREXATE SODIUM
     Indication: RHEUMATOID ARTHRITIS
     Dosage: 2.1429 MG
     Route: 058
     Dates: start: 2013, end: 20140715
  4. CORTANCYL [Suspect]
     Active Substance: PREDNISONE
     Indication: RHEUMATOID ARTHRITIS
     Dosage: 0.5 DF
     Route: 048
     Dates: start: 201402, end: 20140716
  5. KARDEGIC [Concomitant]
     Active Substance: ASPIRIN LYSINE
  6. FUROSEMIDE. [Concomitant]
     Active Substance: FUROSEMIDE
  7. RAMIPRIL. [Concomitant]
     Active Substance: RAMIPRIL
  8. ERYTHROPOIETIN [Concomitant]
     Active Substance: ERYTHROPOIETIN
  9. ORELOX [Suspect]
     Active Substance: CEFPODOXIME
     Indication: BRONCHITIS
     Route: 048
     Dates: start: 20140708, end: 20140715
  10. TAHOR [Concomitant]
     Active Substance: ATORVASTATIN CALCIUM
  11. METHYLPREDNISOLONE. [Concomitant]
     Active Substance: METHYLPREDNISOLONE
  12. SPECIAFOLDINE [Concomitant]
     Active Substance: FOLIC ACID
  13. ESCITALOPRAM [Suspect]
     Active Substance: ESCITALOPRAM OXALATE
     Indication: PRODUCT USED FOR UNKNOWN INDICATION
     Dosage: 10 MG
     Route: 048
     Dates: end: 20140715
  14. AUGMENTIN [Suspect]
     Active Substance: AMOXICILLIN\CLAVULANATE POTASSIUM
     Indication: LUNG DISORDER
     Dosage: 3 G
     Route: 048
     Dates: start: 20140715, end: 20140723

REACTIONS (2)
  - Thrombocytopenia [Recovered/Resolved]
  - Neutropenia [Recovered/Resolved]

NARRATIVE: CASE EVENT DATE: 20140716
